FAERS Safety Report 8344335-9 (Version None)
Quarter: 2012Q2

REPORT INFORMATION
  Report Type: 
  Country: None (occurrence: None)
  Receive Date: 20120508
  Receipt Date: 20120427
  Transmission Date: 20120825
  Serious: Yes (Hospitalization)
  Sender: FDA-Public Use
  Company Number: IL-TEVA-334664ISR

PATIENT
  Sex: Female

DRUGS (4)
  1. METFORMIN HCL [Suspect]
     Indication: TYPE 2 DIABETES MELLITUS
  2. SAXAGLIPTIN OR PLACEBO [Suspect]
     Indication: TYPE 2 DIABETES MELLITUS
     Dates: start: 20100830
  3. BISOPROLOL FUMARATE [Suspect]
  4. AMIODARONE HCL [Suspect]
     Dates: start: 20111012

REACTIONS (2)
  - ATRIAL FIBRILLATION [None]
  - SINUS BRADYCARDIA [None]
